FAERS Safety Report 23712864 (Version 1)
Quarter: 2024Q2

REPORT INFORMATION
  Report Type: Spontaneous
  Country: FR (occurrence: FR)
  Receive Date: 20240405
  Receipt Date: 20240405
  Transmission Date: 20240716
  Serious: Yes (Hospitalization)
  Sender: FDA-Public Use
  Company Number: None

PATIENT
  Age: 48 Year
  Sex: Female
  Weight: 74 kg

DRUGS (3)
  1. CARBOPLATIN [Suspect]
     Active Substance: CARBOPLATIN
     Indication: Triple negative breast cancer
     Dosage: UNK
     Dates: start: 20221024, end: 20221129
  2. KEYTRUDA [Suspect]
     Active Substance: PEMBROLIZUMAB
     Indication: Triple negative breast cancer
     Dosage: 200 MG
     Dates: start: 20221024, end: 20221129
  3. TAXOL [Suspect]
     Active Substance: PACLITAXEL
     Indication: Triple negative breast cancer
     Dosage: UNK
     Dates: start: 20221024, end: 20221129

REACTIONS (2)
  - Hepatitis fulminant [Recovered/Resolved with Sequelae]
  - Off label use [Unknown]

NARRATIVE: CASE EVENT DATE: 20221024
